FAERS Safety Report 4273265-7 (Version None)
Quarter: 2004Q1

REPORT INFORMATION
  Report Type: 
  Country: None (occurrence: None)
  Receive Date: 20040116
  Receipt Date: 20031112
  Transmission Date: 20041129
  Serious: Yes (Hospitalization, Disabling)
  Sender: FDA-Public Use
  Company Number: WAES 0311USA01410

PATIENT
  Age: 85 Year
  Sex: Female
  Weight: 68 kg

DRUGS (1)
  1. VIOXX [Suspect]
     Indication: BACK PAIN
     Route: 048

REACTIONS (5)
  - ADVERSE EVENT [None]
  - COGNITIVE DISORDER [None]
  - CONFUSIONAL STATE [None]
  - DYSARTHRIA [None]
  - MOTOR DYSFUNCTION [None]
